FAERS Safety Report 8309755-7 (Version None)
Quarter: 2012Q2

REPORT INFORMATION
  Report Type: 
  Country: None (occurrence: None)
  Receive Date: 20120425
  Receipt Date: 20120413
  Transmission Date: 20120825
  Serious: Yes (Other)
  Sender: FDA-Public Use
  Company Number: PHHY2012ES034220

PATIENT
  Age: 48 Year
  Sex: Male

DRUGS (1)
  1. FLUVASTATIN [Suspect]
     Dosage: 80 MG, UNK

REACTIONS (2)
  - HYPERSENSITIVITY [None]
  - CHOLESTATIC LIVER INJURY [None]
